FAERS Safety Report 8584968-8 (Version None)
Quarter: 2012Q3

REPORT INFORMATION
  Report Type: 
  Country: None (occurrence: None)
  Receive Date: 20120802
  Receipt Date: 20120802
  Transmission Date: 20120928
  Serious: No
  Sender: FDA-Public Use
  Company Number: None

PATIENT
  Sex: Male

DRUGS (1)
  1. AVONEX [Suspect]
     Dosage: 30MCG QW IM
     Route: 030
     Dates: start: 20110901

REACTIONS (3)
  - DECREASED APPETITE [None]
  - PARAESTHESIA [None]
  - LIBIDO DECREASED [None]
